FAERS Safety Report 9378249 (Version 1)
Quarter: 2013Q3

REPORT INFORMATION
  Report Type: Spontaneous
  Country: FR (occurrence: FR)
  Receive Date: 20130701
  Receipt Date: 20130701
  Transmission Date: 20140515
  Serious: Yes (Hospitalization)
  Sender: FDA-Public Use
  Company Number: FR-009507513-1306FRA011239

PATIENT
  Sex: Female

DRUGS (1)
  1. FOSAVANCE [Suspect]
     Indication: PRODUCT USED FOR UNKNOWN INDICATION
     Dosage: 1 DF, QW
     Route: 048
     Dates: start: 200903, end: 200903

REACTIONS (3)
  - Chest pain [Recovered/Resolved]
  - Asthenia [Recovered/Resolved]
  - Myalgia [Recovered/Resolved]
